FAERS Safety Report 9397873 (Version 1)
Quarter: 2013Q3

REPORT INFORMATION
  Report Type: Spontaneous
  Country: IT (occurrence: IT)
  Receive Date: 20130712
  Receipt Date: 20130712
  Transmission Date: 20140515
  Serious: Yes (Hospitalization)
  Sender: FDA-Public Use
  Company Number: PHHY2013IT072293

PATIENT
  Age: 52 Year
  Sex: Male

DRUGS (5)
  1. VOLTAREN [Suspect]
     Dosage: 750 MG, TOTAL
     Route: 048
     Dates: start: 20130412, end: 20130412
  2. GABAPENTIN [Suspect]
     Dosage: 30 G, TOTAL
     Route: 048
     Dates: start: 20130412, end: 20130412
  3. RAMIPRIL [Suspect]
     Dosage: 2 G, TOTAL
     Route: 048
     Dates: start: 20130412, end: 20130412
  4. IBUPROFEN [Suspect]
     Dosage: 1.8 G, TOTAL
     Route: 048
     Dates: start: 20130412, end: 20130412
  5. NUROFEN [Suspect]
     Dosage: 9 G, TOTAL
     Route: 048
     Dates: start: 20130412, end: 20130412

REACTIONS (2)
  - Intentional self-injury [Recovering/Resolving]
  - Sopor [Recovering/Resolving]
